FAERS Safety Report 9219834 (Version 2)
Quarter: 2013Q2

REPORT INFORMATION
  Report Type: Spontaneous
  Country: GB (occurrence: None)
  Receive Date: 20130405
  Receipt Date: 20130411
  Transmission Date: 20140414
  Serious: Yes (Death, Other)
  Sender: FDA-Public Use
  Company Number: AUR-APL-2013-02752

PATIENT
  Age: 69 Year
  Sex: Male
  Weight: 77 kg

DRUGS (5)
  1. SIMVASTATIN (SIMVASTATIN) [Suspect]
     Indication: PRODUCT USED FOR UNKNOWN INDICATION
     Route: 048
     Dates: start: 2011, end: 20130304
  2. DOCETAXEL (DOCETAXEL) [Concomitant]
  3. LORATIDINE [Concomitant]
  4. ZOLADEX (GOSERELIN) [Concomitant]
  5. ZOLEDRONIC ACID (ZOLEDRONIC ACID) [Concomitant]

REACTIONS (13)
  - Pyrexia [None]
  - Blood urea increased [None]
  - Blood creatinine increased [None]
  - Blood pH decreased [None]
  - PO2 increased [None]
  - Blood bilirubin increased [None]
  - Blood albumin decreased [None]
  - Alanine aminotransferase increased [None]
  - Blood calcium decreased [None]
  - Protein total decreased [None]
  - Neutrophil count increased [None]
  - Fibrin D dimer increased [None]
  - White blood cell count increased [None]
